FAERS Safety Report 14414340 (Version 1)
Quarter: 2018Q1

REPORT INFORMATION
  Report Type: Spontaneous
  Country: ZA (occurrence: ZA)
  Receive Date: 20180120
  Receipt Date: 20180120
  Transmission Date: 20180509
  Serious: No
  Sender: FDA-Public Use
  Company Number: ZA-ALKEM LABORATORIES LIMITED-ZA-ALKEM-2017-01405

PATIENT
  Age: 6 Year
  Sex: Female

DRUGS (8)
  1. LINEZOLID. [Suspect]
     Active Substance: LINEZOLID
     Indication: DISSEMINATED BACILLUS CALMETTE-GUERIN INFECTION
     Dosage: UNK
     Route: 065
  2. AMIKACIN [Suspect]
     Active Substance: AMIKACIN
     Indication: DISSEMINATED BACILLUS CALMETTE-GUERIN INFECTION
     Dosage: UNK
     Route: 042
  3. TERIZIDONE [Suspect]
     Active Substance: TERIZIDONE
     Indication: DISSEMINATED BACILLUS CALMETTE-GUERIN INFECTION
     Dosage: UNK
     Route: 065
  4. IMMUNOGLOBULIN (IVIG) [Suspect]
     Active Substance: HUMAN IMMUNOGLOBULIN G
     Indication: DISSEMINATED BACILLUS CALMETTE-GUERIN INFECTION
     Dosage: UNK
     Route: 042
  5. PARA-AMINOSALICYLIC ACID [Suspect]
     Active Substance: AMINOSALICYLIC ACID
     Indication: DISSEMINATED BACILLUS CALMETTE-GUERIN INFECTION
     Dosage: UNK
     Route: 065
  6. LEVOFLOXACIN. [Suspect]
     Active Substance: LEVOFLOXACIN
     Indication: DISSEMINATED BACILLUS CALMETTE-GUERIN INFECTION
     Dosage: UNK
     Route: 065
  7. RIFAMPICIN [Suspect]
     Active Substance: RIFAMPIN
     Indication: DISSEMINATED BACILLUS CALMETTE-GUERIN INFECTION
     Dosage: UNK
     Route: 065
  8. ISONIAZID. [Suspect]
     Active Substance: ISONIAZID
     Indication: DISSEMINATED BACILLUS CALMETTE-GUERIN INFECTION
     Dosage: UNK
     Route: 065

REACTIONS (1)
  - Drug ineffective [Unknown]
